FAERS Safety Report 15808572 (Version 1)
Quarter: 2019Q1

REPORT INFORMATION
  Report Type: Spontaneous
  Country: GB (occurrence: GB)
  Receive Date: 20190110
  Receipt Date: 20190110
  Transmission Date: 20190417
  Serious: Yes (Hospitalization, Other)
  Sender: FDA-Public Use
  Company Number: GB-VERTEX PHARMACEUTICALS-2019-000105

PATIENT
  Age: 11 Year
  Sex: Female
  Weight: 43 kg

DRUGS (14)
  1. KALYDECO [Suspect]
     Active Substance: IVACAFTOR
     Indication: CYSTIC FIBROSIS
     Dosage: 300 MG, QD
     Route: 048
     Dates: start: 20130705, end: 20181205
  2. PARACETAMOL [Concomitant]
     Active Substance: ACETAMINOPHEN
  3. CREON [Concomitant]
     Active Substance: PANCRELIPASE AMYLASE\PANCRELIPASE LIPASE\PANCRELIPASE PROTEASE
  4. CO-AMOXICLAV [Concomitant]
     Active Substance: AMOXICILLIN\CLAVULANATE POTASSIUM
  5. TAZOCIN [Concomitant]
     Active Substance: PIPERACILLIN SODIUM\TAZOBACTAM SODIUM
  6. TOBRAMYCIN. [Concomitant]
     Active Substance: TOBRAMYCIN
  7. SODIUM CHLORIDE. [Concomitant]
     Active Substance: SODIUM CHLORIDE
  8. DORNASE ALFA. [Concomitant]
     Active Substance: DORNASE ALFA
  9. FLUCLOXACILLIN [Concomitant]
     Active Substance: FLUCLOXACILLIN
  10. SALBUTAMOL [Concomitant]
     Active Substance: ALBUTEROL
  11. URSODEOXYCHOLIC ACID [Concomitant]
     Active Substance: URSODIOL
  12. SERETIDE [Concomitant]
     Active Substance: FLUTICASONE PROPIONATE\SALMETEROL XINAFOATE
  13. CEFTAZIDIME. [Concomitant]
     Active Substance: CEFTAZIDIME
  14. RETINOL [Concomitant]
     Active Substance: RETINOL

REACTIONS (2)
  - Infective pulmonary exacerbation of cystic fibrosis [Not Recovered/Not Resolved]
  - Sweat test abnormal [Not Recovered/Not Resolved]

NARRATIVE: CASE EVENT DATE: 20180704
